FAERS Safety Report 7872103-0 (Version None)
Quarter: 2011Q4

REPORT INFORMATION
  Report Type: 
  Country: None (occurrence: None)
  Receive Date: 20111029
  Receipt Date: 20110314
  Transmission Date: 20120403
  Serious: No
  Sender: FDA-Public Use
  Company Number: US-AMGEN-USASP2011014105

PATIENT
  Age: 62 Year
  Sex: Female

DRUGS (2)
  1. TREXALL [Concomitant]
     Dosage: 3 MG, QWK
     Dates: start: 20030110
  2. ENBREL [Suspect]
     Indication: RHEUMATOID ARTHRITIS
     Dates: start: 20000301

REACTIONS (3)
  - COUGH [None]
  - NASOPHARYNGITIS [None]
  - PAIN [None]
